FAERS Safety Report 7204505-X (Version None)
Quarter: 2010Q4

REPORT INFORMATION
  Report Type: 
  Country: None (occurrence: None)
  Receive Date: 20101217
  Receipt Date: 20101210
  Transmission Date: 20110411
  Serious: Yes (Other)
  Sender: FDA-Public Use
  Company Number: 2010SP064260

PATIENT
  Sex: Male

DRUGS (2)
  1. NITROGLYCERIN [Suspect]
     Indication: ANGINA PECTORIS
     Dates: start: 20100901
  2. NITROGLYCERIN [Suspect]
     Indication: ANGINA PECTORIS
     Dates: start: 20101201

REACTIONS (2)
  - APPLICATION SITE BLEEDING [None]
  - APPLICATION SITE HAEMATOMA [None]
